FAERS Safety Report 8271341-5 (Version None)
Quarter: 2012Q2

REPORT INFORMATION
  Report Type: 
  Country: None (occurrence: None)
  Receive Date: 20120410
  Receipt Date: 20120404
  Transmission Date: 20120825
  Serious: Yes (Hospitalization)
  Sender: FDA-Public Use
  Company Number: DE-PFIZER INC-2012085199

PATIENT
  Sex: Male

DRUGS (4)
  1. VENLAFAXINE HCL [Suspect]
     Dosage: 75 MG, 2X/DAY
     Route: 048
     Dates: start: 20110622
  2. VENLAFAXINE HCL [Suspect]
     Dosage: 150 MG, 1X/DAY
     Route: 048
     Dates: end: 20110615
  3. VENLAFAXINE HCL [Suspect]
     Dosage: 225 MG, 1X/DAY
     Route: 048
     Dates: start: 20110616, end: 20110621
  4. AMITRIPTYLINE [Concomitant]
     Dosage: 25 MG, UNK
     Route: 048

REACTIONS (2)
  - DYSPEPSIA [None]
  - HYPOACUSIS [None]
